FAERS Safety Report 25948250 (Version 1)
Quarter: 2025Q4

REPORT INFORMATION
  Report Type: Spontaneous
  Country: US (occurrence: US)
  Receive Date: 20251022
  Receipt Date: 20251022
  Transmission Date: 20260117
  Serious: No
  Sender: SANOFI AVENTIS
  Company Number: US-SA-2025SA311966

PATIENT
  Age: 50 Year
  Sex: Female
  Weight: 79.3 kg

DRUGS (1)
  1. DUPIXENT [Suspect]
     Active Substance: DUPILUMAB
     Indication: Crohn^s disease
     Dosage: 600 MG, 1X
     Route: 058

REACTIONS (1)
  - Product use in unapproved indication [Unknown]
